FAERS Safety Report 22213809 (Version 1)
Quarter: 2023Q2

REPORT INFORMATION
  Report Type: Spontaneous
  Country: US (occurrence: US)
  Receive Date: 20230414
  Receipt Date: 20230414
  Transmission Date: 20230722
  Serious: No
  Sender: FDA-Public Use
  Company Number: US-ALLERGAN-2234859US

PATIENT
  Age: 25 Year

DRUGS (1)
  1. LILETTA [Suspect]
     Active Substance: LEVONORGESTREL
     Indication: Product used for unknown indication
     Dosage: 52 MG, SINGLE
     Route: 015
     Dates: start: 20221017, end: 20221017

REACTIONS (3)
  - Tremor [Unknown]
  - Pain [Unknown]
  - Uterine spasm [Unknown]

NARRATIVE: CASE EVENT DATE: 20221017
